FAERS Safety Report 9381519 (Version 1)
Quarter: 2013Q3

REPORT INFORMATION
  Report Type: Spontaneous
  Country: US (occurrence: US)
  Receive Date: 20130703
  Receipt Date: 20130703
  Transmission Date: 20140515
  Serious: No
  Sender: FDA-Public Use
  Company Number: US-US-EMD SERONO, INC.-310010J09USA

PATIENT
  Age: 32 Year
  Sex: Female

DRUGS (4)
  1. GONAL-F [Suspect]
     Indication: INFERTILITY
     Dates: start: 20091026
  2. CLOMID [Suspect]
     Indication: ANOVULATORY CYCLE
     Dates: start: 20091022
  3. ESTRADIOL [Concomitant]
     Indication: PRODUCT USED FOR UNKNOWN INDICATION
  4. CRINONE [Concomitant]
     Indication: PRODUCT USED FOR UNKNOWN INDICATION

REACTIONS (3)
  - Ovarian failure [Recovered/Resolved]
  - Vaginal haemorrhage [Unknown]
  - Body temperature increased [Unknown]
